FAERS Safety Report 14996487 (Version 1)
Quarter: 2018Q2

REPORT INFORMATION
  Report Type: Spontaneous
  Country: BD (occurrence: BD)
  Receive Date: 20180611
  Receipt Date: 20180611
  Transmission Date: 20180711
  Serious: Yes (Death, Life-Threatening, Hospitalization, Other)
  Sender: FDA-Public Use
  Company Number: BD-PFIZER INC-2018233537

PATIENT
  Age: 20 Year
  Sex: Female
  Weight: 27.98 kg

DRUGS (13)
  1. CFZ (CLOFAZIMINE) [Suspect]
     Active Substance: CLOFAZIMINE
     Indication: TUBERCULOSIS
     Dosage: 100 MG, 1X/DAY
     Route: 048
     Dates: start: 20170327
  2. DELAMANID [Suspect]
     Active Substance: DELAMANID
     Indication: TUBERCULOSIS
     Dosage: 200 MG, 1X/DAY
     Route: 048
     Dates: start: 20171111
  3. MFX (MOXIFLOXACIN) [Suspect]
     Active Substance: MOXIFLOXACIN
     Indication: TUBERCULOSIS
     Dosage: 400 MG, 1X/DAY
     Route: 048
     Dates: start: 20170327
  4. EMENIL [Concomitant]
     Dosage: UNK
     Dates: start: 20170827
  5. PYRIDOXINE [Concomitant]
     Active Substance: PYRIDOXINE
     Dosage: 20 MG, UNK
     Dates: start: 20170327
  6. PZA [Suspect]
     Active Substance: PYRAZINAMIDE
     Indication: TUBERCULOSIS
     Dosage: UNK
     Dates: start: 20151226
  7. PZA [Suspect]
     Active Substance: PYRAZINAMIDE
     Dosage: 1000 MG, 1X/DAY
     Route: 048
     Dates: start: 20170327
  8. BDQ (BEDAQUILINE) [Suspect]
     Active Substance: BEDAQUILINE
     Dosage: 200 MG, 3 D/W
     Route: 048
  9. LINEZOLID. [Suspect]
     Active Substance: LINEZOLID
     Indication: TUBERCULOSIS
     Dosage: 600 MG, 1X/DAY
     Route: 048
     Dates: start: 20170327
  10. BDQ (BEDAQUILINE) [Suspect]
     Active Substance: BEDAQUILINE
     Dosage: 200 MG, 1X/DAY
     Route: 048
     Dates: start: 20170327
  11. OMEPRAZOLE. [Concomitant]
     Active Substance: OMEPRAZOLE
     Dosage: 20 MG, UNK
     Dates: start: 20170327
  12. BDQ (BEDAQUILINE) [Suspect]
     Active Substance: BEDAQUILINE
     Indication: TUBERCULOSIS
     Dosage: 400 MG, 1X/DAY
     Route: 048
     Dates: start: 20170327
  13. PAS-NA (AMINOSALICYLATE SODIUM) [Suspect]
     Active Substance: AMINOSALICYLATE SODIUM
     Indication: TUBERCULOSIS
     Dosage: 8000 MG, 1X/DAY
     Route: 048
     Dates: start: 20170327, end: 20171215

REACTIONS (3)
  - Respiratory failure [Fatal]
  - Respiratory distress [Not Recovered/Not Resolved]
  - Dyspnoea [Unknown]

NARRATIVE: CASE EVENT DATE: 20180220
